FAERS Safety Report 8785005 (Version 2)
Quarter: 2012Q4

REPORT INFORMATION
  Report Type: 
  Country: US (occurrence: US)
  Receive Date: 20120914
  Receipt Date: 20121227
  Transmission Date: 20130627
  Serious: Yes (Hospitalization, Other)
  Sender: FDA-Public Use
  Company Number: US-JNJFOC-20120901921

PATIENT
  Age: 48 Year
  Sex: Female

DRUGS (2)
  1. PALIPERIDONE [Suspect]
     Indication: ABNORMAL BEHAVIOUR
     Route: 048
  2. PALIPERIDONE [Suspect]
     Indication: ABNORMAL BEHAVIOUR
     Route: 048

REACTIONS (4)
  - Hypothermia [Recovered/Resolved]
  - Thrombocytopenia [Recovered/Resolved]
  - Transaminases increased [Recovered/Resolved]
  - Hyperprolactinaemia [Unknown]
